FAERS Safety Report 5882026-4 (Version None)
Quarter: 2008Q3

REPORT INFORMATION
  Report Type: 
  Country: None (occurrence: None)
  Receive Date: 20080912
  Receipt Date: 20080718
  Transmission Date: 20090109
  Serious: No
  Sender: FDA-Public Use
  Company Number: US-ABBOTT-08P-163-0465058-00

PATIENT
  Sex: Female
  Weight: 83.99 kg

DRUGS (9)
  1. HUMIRA [Suspect]
     Indication: CROHN'S DISEASE
     Dosage: SHOT EVERY OTHER WEEK
     Route: 050
     Dates: start: 20070101, end: 20080501
  2. PREDNISONE TAB [Concomitant]
     Indication: CROHN'S DISEASE
     Route: 048
     Dates: start: 20080201
  3. INSULIN NOVOLOG 70/30 [Concomitant]
     Indication: TYPE 2 DIABETES MELLITUS
     Dosage: 2-3 TIMES A DAY
     Route: 050
     Dates: start: 20040101
  4. PIOGLITAZONE [Concomitant]
     Indication: TYPE 2 DIABETES MELLITUS
     Dosage: ONE PILL EVERY DAY
     Route: 048
     Dates: start: 20040101
  5. GLIPIZIDE [Concomitant]
     Indication: TYPE 2 DIABETES MELLITUS
     Route: 048
     Dates: start: 20040101
  6. CALCIUM [Concomitant]
     Indication: DRUG USE FOR UNKNOWN INDICATION
     Dosage: 1-2 TABLETS ONCE A DAY
     Route: 048
  7. RABEPRAZOLE SODIUM [Concomitant]
     Indication: GASTROOESOPHAGEAL REFLUX DISEASE
     Route: 048
     Dates: start: 20080501
  8. LORATADINE [Concomitant]
     Indication: HYPERSENSITIVITY
     Dosage: ONE PILL EVERY DAY
     Route: 048
     Dates: start: 20030101
  9. CERTOLIZUMAB PEGOL [Concomitant]
     Indication: CROHN'S DISEASE
     Dates: start: 20080501

REACTIONS (3)
  - ABDOMINAL PAIN [None]
  - DRUG INEFFECTIVE [None]
  - GASTROINTESTINAL HAEMORRHAGE [None]
